FAERS Safety Report 7420273-0 (Version None)
Quarter: 2011Q2

REPORT INFORMATION
  Report Type: 
  Country: None (occurrence: None)
  Receive Date: 20110407
  Receipt Date: 20110324
  Transmission Date: 20111010
  Serious: Yes (Hospitalization)
  Sender: FDA-Public Use
  Company Number: FR-2011-0739

PATIENT
  Age: 31 Year
  Sex: Male

DRUGS (3)
  1. NAVELBINE [Suspect]
     Indication: HODGKIN'S DISEASE
     Dosage: 40 MG IV
     Route: 042
     Dates: start: 20100826, end: 20110210
  2. GEMZAR [Suspect]
     Indication: HODGKIN'S DISEASE
     Dosage: 1600 MG IV
     Route: 042
     Dates: start: 20100826, end: 20110210
  3. SUBUTEX [Concomitant]

REACTIONS (5)
  - RESPIRATORY DISTRESS [None]
  - CARDIAC FAILURE [None]
  - PLEURAL EFFUSION [None]
  - PANCYTOPENIA [None]
  - ACIDOSIS [None]
